FAERS Safety Report 11717113 (Version 1)
Quarter: 2015Q4

REPORT INFORMATION
  Report Type: Spontaneous
  Country: CN (occurrence: CN)
  Receive Date: 20151109
  Receipt Date: 20151109
  Transmission Date: 20160304
  Serious: Yes (Other)
  Sender: FDA-Public Use
  Company Number: CN-ELI_LILLY_AND_COMPANY-CN201510009844

PATIENT
  Sex: Female
  Weight: 53 kg

DRUGS (5)
  1. CARBAMAZEPINE. [Suspect]
     Active Substance: CARBAMAZEPINE
     Indication: RATHKE^S CLEFT CYST
     Dosage: UNK, TID
     Route: 048
     Dates: start: 20150321, end: 20150615
  2. PREDSOLONE [Concomitant]
     Active Substance: PREDNISOLONE
     Indication: RATHKE^S CLEFT CYST
     Dosage: 10 MG, QD
     Route: 048
     Dates: start: 20150321, end: 20150626
  3. OLANZAPINE. [Suspect]
     Active Substance: OLANZAPINE
     Indication: RATHKE^S CLEFT CYST
     Dosage: 2.5 MG, QD
     Route: 048
     Dates: start: 20150321, end: 20150615
  4. DESMOPRESSIN ACETATE. [Suspect]
     Active Substance: DESMOPRESSIN ACETATE
     Indication: RATHKE^S CLEFT CYST
     Dosage: 1 DF, EVERY 4 HRS
     Dates: start: 20150321, end: 20150615
  5. HYDROCHLOROTHIAZIDE. [Suspect]
     Active Substance: HYDROCHLOROTHIAZIDE
     Indication: RATHKE^S CLEFT CYST
     Dosage: 1 DF, QD
     Route: 048
     Dates: start: 20150321, end: 20150615

REACTIONS (6)
  - Dermatitis [Recovering/Resolving]
  - Erythema [Recovering/Resolving]
  - Pruritus [Recovering/Resolving]
  - Rash [Recovering/Resolving]
  - Off label use [Unknown]
  - Mouth ulceration [Recovering/Resolving]
